FAERS Safety Report 21606244 (Version 4)
Quarter: 2022Q4

REPORT INFORMATION
  Report Type: Other
  Country: US (occurrence: None)
  Receive Date: 20221117
  Receipt Date: 20221219
  Transmission Date: 20230113
  Serious: Yes (Other)
  Sender: FDA-Public Use
  Company Number: US-ROCHE-3218924

PATIENT
  Age: 78 Year
  Sex: Male

DRUGS (2)
  1. ESBRIET [Suspect]
     Active Substance: PIRFENIDONE
     Indication: Interstitial lung disease
     Dosage: TAKE 3 CAPSULE(S) BY MOUTH 3 TIMES A DAY BEFORE MEALS
     Route: 048
  2. ESBRIET [Suspect]
     Active Substance: PIRFENIDONE
     Indication: Pneumonia

REACTIONS (6)
  - Dyspepsia [Unknown]
  - Rectal haemorrhage [Unknown]
  - Haemorrhoids [Unknown]
  - Constipation [Unknown]
  - Abdominal discomfort [Unknown]
  - Haemorrhage [Unknown]
